FAERS Safety Report 21812178 (Version 1)
Quarter: 2022Q4

REPORT INFORMATION
  Report Type: Spontaneous
  Country: US (occurrence: None)
  Receive Date: 20221230
  Receipt Date: 20221230
  Transmission Date: 20230113
  Serious: Yes (Other)
  Sender: FDA-Public Use
  Company Number: None

PATIENT
  Age: 32 Year
  Sex: Female
  Weight: 68 kg

DRUGS (3)
  1. MONISTAT TIOCONAZOLE 1 [Suspect]
     Active Substance: TIOCONAZOLE
     Indication: Fungal infection
     Dosage: OTHER QUANTITY : 1 SUPPOSITORY(IES);?FREQUENCY : AT BEDTIME;?
     Route: 067
     Dates: start: 20221229, end: 20221230
  2. ADDERALL [Concomitant]
     Active Substance: AMPHETAMINE ASPARTATE\AMPHETAMINE SULFATE\DEXTROAMPHETAMINE SACCHARATE\DEXTROAMPHETAMINE SULFATE
  3. DOXYCYCLINE [Concomitant]
     Active Substance: DOXYCYCLINE

REACTIONS (5)
  - Pain [None]
  - Rash [None]
  - Swelling [None]
  - Skin discolouration [None]
  - Sleep disorder [None]

NARRATIVE: CASE EVENT DATE: 20221230
